FAERS Safety Report 8606692-5 (Version None)
Quarter: 2012Q3

REPORT INFORMATION
  Report Type: 
  Country: None (occurrence: None)
  Receive Date: 20120820
  Receipt Date: 20120820
  Transmission Date: 20120928
  Serious: Yes (Hospitalization)
  Sender: FDA-Public Use
  Company Number: IT-BAYER-2012-085194

PATIENT
  Age: 79 Year
  Sex: Male

DRUGS (6)
  1. ROSUVASTATIN [Concomitant]
     Indication: HYPERCHOLESTEROLAEMIA
     Dosage: DAILY DOSE 1 DF
     Route: 048
     Dates: start: 20120101, end: 20120709
  2. IRBESARTAN [Concomitant]
     Indication: HYPERTENSION
     Dosage: DAILY DOSE 1 DF
     Route: 048
     Dates: start: 20120101, end: 20120709
  3. HUMALOG [Concomitant]
     Indication: DIABETES MELLITUS
     Dosage: DAILY DOSE 46 DF
     Route: 058
     Dates: start: 20120101, end: 20120709
  4. ASPIRIN [Suspect]
     Indication: HYPERTENSION
     Dosage: 100 MG, QD
     Route: 048
     Dates: start: 20120101, end: 20120709
  5. INSULIN DETEMIR [Concomitant]
     Indication: DIABETES MELLITUS
     Dosage: DAILY DOSE 23 DF
     Route: 058
     Dates: start: 20120101, end: 20120709
  6. DULOXETIME HYDROCHLORIDE [Concomitant]
     Dosage: DAILY DOSE 1 DF
     Route: 048
     Dates: start: 20120101, end: 20120709

REACTIONS (5)
  - BLOOD GLUCOSE ABNORMAL [None]
  - ASTHENIA [None]
  - GASTRIC ULCER [None]
  - FAECES DISCOLOURED [None]
  - RENAL DISORDER [None]
